FAERS Safety Report 13157879 (Version 1)
Quarter: 2017Q1

REPORT INFORMATION
  Report Type: Spontaneous
  Country: US (occurrence: US)
  Receive Date: 20170127
  Receipt Date: 20170127
  Transmission Date: 20170428
  Serious: No
  Sender: FDA-Public Use
  Company Number: US-BIOGEN-2017BI00347105

PATIENT
  Sex: Female

DRUGS (1)
  1. TECFIDERA [Suspect]
     Active Substance: DIMETHYL FUMARATE
     Indication: MULTIPLE SCLEROSIS
     Route: 065
     Dates: start: 20140225

REACTIONS (7)
  - Multiple sclerosis [Unknown]
  - Intentional product misuse [Unknown]
  - Hypoaesthesia [Unknown]
  - Dizziness [Unknown]
  - Paraesthesia [Unknown]
  - Vertigo [Unknown]
  - Stress [Unknown]
